FAERS Safety Report 4825673-0 (Version None)
Quarter: 2005Q4

REPORT INFORMATION
  Report Type: 
  Country: None (occurrence: None)
  Receive Date: 20051109
  Receipt Date: 20051028
  Transmission Date: 20060501
  Serious: Yes (Death)
  Sender: FDA-Public Use
  Company Number: A001-002-006691

PATIENT
  Sex: Male

DRUGS (2)
  1. ARICEPT [Suspect]
     Dosage: ORAL
     Route: 048
  2. LIPITOR [Suspect]
     Dosage: ORAL
     Route: 048
     Dates: end: 20050101

REACTIONS (2)
  - METASTASES TO BONE [None]
  - PROSTATE CANCER METASTATIC [None]
